FAERS Safety Report 14444838 (Version 10)
Quarter: 2018Q2

REPORT INFORMATION
  Report Type: Spontaneous
  Country: CZ (occurrence: CZ)
  Receive Date: 20180126
  Receipt Date: 20180416
  Transmission Date: 20180711
  Serious: Yes (Other)
  Sender: FDA-Public Use
  Company Number: PHHY2018CZ011948

PATIENT
  Age: 68 Year
  Sex: Male

DRUGS (4)
  1. DICLOFENAC [Suspect]
     Active Substance: DICLOFENAC
     Indication: PRODUCT USED FOR UNKNOWN INDICATION
     Dosage: UNK UNK, BID
     Route: 065
     Dates: start: 20170901
  2. SORVASTA [Suspect]
     Active Substance: ROSUVASTATIN CALCIUM
     Indication: TYPE V HYPERLIPIDAEMIA
     Dosage: 30 MG, QD
     Route: 065
     Dates: start: 20170822
  3. APO OME [Suspect]
     Active Substance: OMEPRAZOLE
     Indication: PRODUCT USED FOR UNKNOWN INDICATION
     Route: 065
  4. PREDNISONE. [Suspect]
     Active Substance: PREDNISONE
     Indication: PRODUCT USED FOR UNKNOWN INDICATION
     Dosage: 40 MG, BID, TWICE IN THE MORNING
     Route: 065
     Dates: start: 20170921

REACTIONS (1)
  - Haematospermia [Unknown]
